FAERS Safety Report 8031554-4 (Version None)
Quarter: 2012Q1

REPORT INFORMATION
  Report Type: 
  Country: None (occurrence: None)
  Receive Date: 20120109
  Receipt Date: 20120104
  Transmission Date: 20120608
  Serious: Yes (Hospitalization)
  Sender: FDA-Public Use
  Company Number: US-MEDIMMUNE-MEDI-0014344

PATIENT
  Sex: Male

DRUGS (1)
  1. SYNAGIS [Suspect]

REACTIONS (2)
  - DEVICE RELATED INFECTION [None]
  - FEEDING TUBE COMPLICATION [None]
